FAERS Safety Report 6712851-9 (Version None)
Quarter: 2010Q2

REPORT INFORMATION
  Report Type: 
  Country: None (occurrence: None)
  Receive Date: 20100505
  Receipt Date: 20100505
  Transmission Date: 20101027
  Serious: Yes (Hospitalization)
  Sender: FDA-Public Use
  Company Number: None

PATIENT
  Age: 70 Year
  Sex: Male
  Weight: 148.3 kg

DRUGS (3)
  1. ASPIRIN [Suspect]
     Indication: CEREBROVASCULAR ACCIDENT PROPHYLAXIS
     Dosage: 325 MG EVERY DAY PO
     Route: 048
     Dates: start: 20080821, end: 20100212
  2. NABUMETONE [Suspect]
     Indication: BACK PAIN
     Dosage: 1000 MG HS PO
     Route: 048
     Dates: start: 20091029, end: 20100212
  3. NABUMETONE [Suspect]
     Indication: OSTEOARTHRITIS
     Dosage: 1000 MG HS PO
     Route: 048
     Dates: start: 20091029, end: 20100212

REACTIONS (4)
  - DUODENAL ULCER [None]
  - GASTRIC HAEMORRHAGE [None]
  - GASTROINTESTINAL HAEMORRHAGE [None]
  - HAEMOGLOBIN DECREASED [None]
